FAERS Safety Report 18637658 (Version 11)
Quarter: 2025Q2

REPORT INFORMATION
  Report Type: Spontaneous
  Country: GB (occurrence: GB)
  Receive Date: 20201219
  Receipt Date: 20250627
  Transmission Date: 20250716
  Serious: Yes (Death, Hospitalization, Other)
  Sender: AUROBINDO
  Company Number: GB-CHEPLA-C20203700_05

PATIENT
  Age: 39 Year
  Sex: Male

DRUGS (14)
  1. LEVETIRACETAM [Suspect]
     Active Substance: LEVETIRACETAM
     Indication: Status epilepticus
     Route: 065
  2. PHENYTOIN [Suspect]
     Active Substance: PHENYTOIN
     Indication: Status epilepticus
     Route: 065
  3. TOPIRAMATE [Suspect]
     Active Substance: TOPIRAMATE
     Indication: Status epilepticus
     Route: 048
  4. CLONAZEPAM [Suspect]
     Active Substance: CLONAZEPAM
     Indication: Status epilepticus
     Route: 065
  5. FENTANYL [Suspect]
     Active Substance: FENTANYL
     Indication: Status epilepticus
     Dosage: 100 MICROGRAM, EVERY HOUR,ALL SEDATION STOPPED 28/01
     Route: 042
     Dates: end: 20170128
  6. MIDAZOLAM [Suspect]
     Active Substance: MIDAZOLAM
     Indication: Status epilepticus
     Dosage: 20 MILLIGRAM, EVERY HOUR,ALL SEDATION STOPPED 28/01
     Route: 042
     Dates: end: 20170128
  7. PHENOBARBITAL [Suspect]
     Active Substance: PHENOBARBITAL
     Indication: Status epilepticus
     Route: 065
  8. PREDNISOLONE [Suspect]
     Active Substance: PREDNISOLONE
     Indication: Status epilepticus
     Route: 065
  9. PROPOFOL [Suspect]
     Active Substance: PROPOFOL
     Indication: Status epilepticus
     Dosage: 1 MILLIGRAM/KILOGRAM, EVERY HOUR,ALL SEDATION STOPPED 28/01
     Route: 042
     Dates: end: 20170128
  10. DEPAKENE [Suspect]
     Active Substance: VALPROIC ACID
     Indication: Status epilepticus
     Route: 065
  11. THIOPENTAL [Suspect]
     Active Substance: THIOPENTAL
     Indication: Status epilepticus
     Route: 042
  12. THIOPENTAL [Suspect]
     Active Substance: THIOPENTAL
     Dosage: 4.8 MILLIGRAM/KILOGRAM, EVERY HOUR,UP TO 4,80 MG/KG/H
     Route: 042
     Dates: start: 20161114, end: 20170109
  13. TOPIRAMATE [Suspect]
     Active Substance: TOPIRAMATE
     Indication: Status epilepticus
     Route: 048
  14. PHENOBARBITAL [Concomitant]
     Active Substance: PHENOBARBITAL
     Indication: Status epilepticus
     Route: 065

REACTIONS (17)
  - Pseudomembranous colitis [Fatal]
  - Acute kidney injury [Fatal]
  - Metabolic acidosis [Fatal]
  - Hepatitis fulminant [Fatal]
  - Malabsorption [Fatal]
  - Colitis ischaemic [Fatal]
  - Deep vein thrombosis [Fatal]
  - Infection [Fatal]
  - Intensive care unit acquired weakness [Fatal]
  - Coagulopathy [Fatal]
  - Abdominal wall haematoma [Fatal]
  - Autonomic nervous system imbalance [Fatal]
  - Sepsis [Fatal]
  - Multiple organ dysfunction syndrome [Fatal]
  - Product use in unapproved indication [Fatal]
  - Intentional product use issue [Fatal]
  - Off label use [Fatal]
